FAERS Safety Report 16689086 (Version 2)
Quarter: 2019Q3

REPORT INFORMATION
  Report Type: Spontaneous
  Country: TW (occurrence: TW)
  Receive Date: 20190809
  Receipt Date: 20190930
  Transmission Date: 20191004
  Serious: Yes (Other)
  Sender: FDA-Public Use
  Company Number: TW-PFIZER INC-2019201214

PATIENT
  Age: 32 Year
  Sex: Male

DRUGS (1)
  1. BENEFIX [Suspect]
     Active Substance: COAGULATION FACTOR IX RECOMBINANT HUMAN\ISOPROPYL ALCOHOL
     Indication: FACTOR IX DEFICIENCY
     Dosage: 4000 IU, 2X/WEEK
     Route: 042

REACTIONS (6)
  - Cardiomegaly [Not Recovered/Not Resolved]
  - Hypertension [Recovering/Resolving]
  - Myocardial fibrosis [Not Recovered/Not Resolved]
  - Infarction [Recovering/Resolving]
  - Glucose urine present [Not Recovered/Not Resolved]
  - Coronary artery stenosis [Recovering/Resolving]

NARRATIVE: CASE EVENT DATE: 2019
